FAERS Safety Report 4554507-7 (Version None)
Quarter: 2005Q1

REPORT INFORMATION
  Report Type: 
  Country: None (occurrence: None)
  Receive Date: 20050118
  Receipt Date: 20050106
  Transmission Date: 20050727
  Serious: Yes (Death)
  Sender: FDA-Public Use
  Company Number: US-JNJFOC-20041200186

PATIENT
  Sex: Female
  Weight: 90.72 kg

DRUGS (7)
  1. RISPERDAL [Suspect]
     Route: 049
  2. RISPERDAL [Suspect]
     Route: 049
  3. ORTHO TRI-CYCLEN [Suspect]
     Indication: CONTRACEPTION
  4. SEROQUEL [Concomitant]
     Indication: PARANOIA
     Route: 049
  5. CARBATROL [Concomitant]
     Indication: AFFECTIVE DISORDER
     Route: 049
  6. ZITHROMAX [Concomitant]
     Route: 049
  7. DEPO-PROVERA [Concomitant]
     Route: 030

REACTIONS (5)
  - BRONCHITIS [None]
  - DYSPNOEA [None]
  - PAIN IN EXTREMITY [None]
  - PULMONARY EMBOLISM [None]
  - VAGINAL INFECTION [None]
